FAERS Safety Report 5324428-0 (Version None)
Quarter: 2007Q2

REPORT INFORMATION
  Report Type: 
  Country: None (occurrence: None)
  Receive Date: 20070509
  Receipt Date: 20070424
  Transmission Date: 20071010
  Serious: Yes (Other)
  Sender: FDA-Public Use
  Company Number: 2007RR-07194

PATIENT
  Age: 15 Year
  Sex: Female

DRUGS (1)
  1. IBUPROFEN [Suspect]

REACTIONS (5)
  - DRUG ERUPTION [None]
  - MUCOSAL INFLAMMATION [None]
  - OEDEMA [None]
  - ULCER [None]
  - VULVITIS [None]
